FAERS Safety Report 9685796 (Version 1)
Quarter: 2013Q4

REPORT INFORMATION
  Report Type: Spontaneous
  Country: US (occurrence: US)
  Receive Date: 20131113
  Receipt Date: 20131113
  Transmission Date: 20140711
  Serious: No
  Sender: FDA-Public Use
  Company Number: US-PFIZER INC-2013322020

PATIENT
  Age: 59 Year
  Sex: 0

DRUGS (1)
  1. LYRICA [Suspect]
     Dosage: UNK

REACTIONS (4)
  - Discomfort [Unknown]
  - Stress [Unknown]
  - Asthenia [Unknown]
  - Condition aggravated [Unknown]
